FAERS Safety Report 5802395-0 (Version None)
Quarter: 2008Q3

REPORT INFORMATION
  Report Type: 
  Country: None (occurrence: None)
  Receive Date: 20080707
  Receipt Date: 20080627
  Transmission Date: 20090109
  Serious: Yes (Hospitalization, Disabling)
  Sender: FDA-Public Use
  Company Number: JP-MERCK-0804USA02608

PATIENT
  Age: 85 Year
  Sex: Female

DRUGS (5)
  1. FOSAMAX [Suspect]
     Indication: OSTEOPOROSIS
     Route: 048
     Dates: start: 20070124, end: 20080221
  2. ASPARA CA [Concomitant]
     Indication: OSTEOPOROSIS
     Route: 048
  3. RENIVEZE [Concomitant]
     Indication: HYPERTENSION
     Route: 048
  4. HIBON [Concomitant]
     Indication: STOMATITIS
     Route: 048
  5. ARICEPT [Concomitant]
     Indication: DEMENTIA ALZHEIMER'S TYPE
     Route: 048

REACTIONS (4)
  - OSTEOMYELITIS [None]
  - OSTEONECROSIS [None]
  - PERIPHERAL NERVE PALSY [None]
  - POSTOPERATIVE WOUND INFECTION [None]
